FAERS Safety Report 4443512-7 (Version None)
Quarter: 2004Q3

REPORT INFORMATION
  Report Type: 
  Country: None (occurrence: None)
  Receive Date: 20040901
  Receipt Date: 20040817
  Transmission Date: 20050211
  Serious: Yes (Life-Threatening)
  Sender: FDA-Public Use
  Company Number: 04P-163-0271107-00

PATIENT
  Age: 24 Year
  Sex: Female

DRUGS (5)
  1. VICODIN [Suspect]
     Indication: HERPES SIMPLEX
     Dosage: PER ORAL
     Route: 048
     Dates: start: 20040729, end: 20040801
  2. VALACICLOVIR HYRDOCHLORIDE [Suspect]
     Dosage: 3 GM, 1 IN 1 D, PER ORAL
     Route: 048
     Dates: start: 20040729, end: 20040801
  3. BLINDED VACCINE TRIAL MEDICATION [Suspect]
     Indication: PROPHYLAXIS
     Dosage: SINGLE DOSE INTRA-MUSCULAR
     Route: 030
     Dates: start: 20040304, end: 20040330
  4. BLINDED VACCINE TRIAL MEDICATION [Suspect]
     Indication: PROPHYLAXIS
     Dosage: SINGLE DOSE INTRA-MUSCULAR
     Route: 030
     Dates: start: 20040427, end: 20040427
  5. NAPROXEN SODIUM [Concomitant]

REACTIONS (1)
  - ANAPHYLACTIC REACTION [None]
